FAERS Safety Report 7614276 (Version 2)
Quarter: 2012Q4

REPORT INFORMATION
  Report Type: 
  Country: JP (occurrence: US)
  Receive Date: 20101001
  Receipt Date: 20121102
  Transmission Date: 20130627
  Serious: Yes (Other)
  Sender: FDA-Public Use
  Company Number: US-JNJFOC-20100706920

PATIENT
  Sex: Male

DRUGS (2)
  1. LEVAQUIN [Suspect]
     Indication: LUNG INFECTION
     Route: 048
     Dates: start: 20061208, end: 20061217
  2. PREDNISONE [Suspect]
     Indication: CHRONIC OBSTRUCTIVE PULMONARY DISEASE

REACTIONS (3)
  - Tendon rupture [Recovering/Resolving]
  - Rotator cuff syndrome [Unknown]
  - Arthropathy [Unknown]
